FAERS Safety Report 20939097 (Version 1)
Quarter: 2022Q2

REPORT INFORMATION
  Report Type: Spontaneous
  Country: US (occurrence: None)
  Receive Date: 20220609
  Receipt Date: 20220609
  Transmission Date: 20220720
  Serious: No
  Sender: FDA-Public Use
  Company Number: None

PATIENT
  Age: 50 Year
  Sex: Female
  Weight: 101.25 kg

DRUGS (5)
  1. SULFAMETHOXAZOLE\TRIMETHOPRIM [Suspect]
     Active Substance: SULFAMETHOXAZOLE\TRIMETHOPRIM
     Indication: Urinary tract infection
     Dosage: OTHER QUANTITY : 14 TABLET(S);?FREQUENCY : TWICE A DAY;?
     Route: 048
     Dates: start: 20220606, end: 20220608
  2. PROPRANOLOL HYDROCHLORIDE [Concomitant]
     Active Substance: PROPRANOLOL HYDROCHLORIDE
  3. LATANOPROST [Concomitant]
     Active Substance: LATANOPROST
  4. LINZESS [Concomitant]
     Active Substance: LINACLOTIDE
  5. Claritin chewable [Concomitant]

REACTIONS (21)
  - Oral pruritus [None]
  - Lip pruritus [None]
  - Tongue pruritus [None]
  - Hypoaesthesia oral [None]
  - Hypoaesthesia oral [None]
  - Hypoaesthesia oral [None]
  - Reaction to colouring [None]
  - Arthropod bite [None]
  - Blister rupture [None]
  - Erythema [None]
  - Chapped lips [None]
  - Rash [None]
  - Rash pruritic [None]
  - Oral discomfort [None]
  - Skin swelling [None]
  - Lip swelling [None]
  - Glossodynia [None]
  - Oral discomfort [None]
  - Hypoaesthesia oral [None]
  - Stomatitis [None]
  - Throat irritation [None]

NARRATIVE: CASE EVENT DATE: 20220606
